FAERS Safety Report 6968054-6 (Version None)
Quarter: 2010Q3

REPORT INFORMATION
  Report Type: 
  Country: None (occurrence: None)
  Receive Date: 20100907
  Receipt Date: 20100825
  Transmission Date: 20110219
  Serious: Yes (Death, Hospitalization)
  Sender: FDA-Public Use
  Company Number: A0879393A

PATIENT
  Age: 42 Year
  Sex: Male

DRUGS (1)
  1. ROSIGLITAZONE MALEATE [Suspect]
     Route: 065

REACTIONS (2)
  - ARTERIOSCLEROSIS [None]
  - HYPERTENSIVE HEART DISEASE [None]
